FAERS Safety Report 16404530 (Version 1)
Quarter: 2019Q2

REPORT INFORMATION
  Report Type: Spontaneous
  Country: CN (occurrence: CN)
  Receive Date: 20190607
  Receipt Date: 20190607
  Transmission Date: 20190711
  Serious: Yes (Other)
  Sender: FDA-Public Use
  Company Number: CN-ASTRAZENECA-2019SE82188

PATIENT
  Age: 55 Year
  Sex: Male

DRUGS (3)
  1. ZOLEDRONIC ACID [Concomitant]
     Active Substance: ZOLEDRONIC ACID
  2. GEFITINIB. [Suspect]
     Active Substance: GEFITINIB
     Indication: LUNG ADENOCARCINOMA STAGE IV
     Route: 048
  3. TAGRISSO [Suspect]
     Active Substance: OSIMERTINIB
     Indication: LUNG ADENOCARCINOMA STAGE IV
     Route: 048
     Dates: start: 201702, end: 201709

REACTIONS (4)
  - Drug resistance [Unknown]
  - Malignant neoplasm progression [Unknown]
  - Acquired gene mutation [Recovered/Resolved]
  - EGFR gene mutation [Unknown]
